FAERS Safety Report 9670860 (Version 1)
Quarter: 2013Q4

REPORT INFORMATION
  Report Type: Spontaneous
  Country: MX (occurrence: MX)
  Receive Date: 20131106
  Receipt Date: 20131106
  Transmission Date: 20140711
  Serious: Yes (Hospitalization)
  Sender: FDA-Public Use
  Company Number: PHHY2013MX124905

PATIENT
  Age: 77 Year
  Sex: Female

DRUGS (3)
  1. ACLASTA [Suspect]
     Dosage: ANNUALLY
     Route: 042
     Dates: start: 2012
  2. ADALAT [Concomitant]
     Indication: HYPERTENSION
     Dosage: 1 DF, UNK
     Dates: start: 201310
  3. CO-DIOVAN [Concomitant]
     Indication: HYPERTENSION
     Dosage: 1 DF, UNK
     Route: 048

REACTIONS (8)
  - Joint injury [Not Recovered/Not Resolved]
  - Sleep disorder [Unknown]
  - Local swelling [Not Recovered/Not Resolved]
  - Nervousness [Not Recovered/Not Resolved]
  - Headache [Not Recovered/Not Resolved]
  - Blood pressure increased [Not Recovered/Not Resolved]
  - Insomnia [Not Recovered/Not Resolved]
  - Asthenia [Not Recovered/Not Resolved]
